FAERS Safety Report 9860016 (Version 2)
Quarter: 2014Q1

REPORT INFORMATION
  Report Type: Spontaneous
  Country: US (occurrence: US)
  Receive Date: 20140131
  Receipt Date: 20140318
  Transmission Date: 20141002
  Serious: Yes (Death, Other)
  Sender: FDA-Public Use
  Company Number: US-GILEAD-2014-0093470

PATIENT
  Sex: Female

DRUGS (3)
  1. LETAIRIS [Suspect]
     Indication: PULMONARY HYPERTENSION
     Dosage: 10 MG, QD
     Route: 048
     Dates: start: 20100601
  2. LETAIRIS [Suspect]
     Indication: UNEVALUABLE EVENT
  3. VELETRI [Concomitant]

REACTIONS (2)
  - Right ventricular failure [Fatal]
  - Neuropathy peripheral [Fatal]
